FAERS Safety Report 8760986 (Version 1)
Quarter: 2012Q4

REPORT INFORMATION
  Report Type: 
  Country: FR (occurrence: FR)
  Receive Date: 20120830
  Receipt Date: 20120830
  Transmission Date: 20130627
  Serious: Yes (Death)
  Sender: FDA-Public Use
  Company Number: FR-GENZYME-CERZ-1002612

PATIENT
  Age: 68 Year
  Sex: Female

DRUGS (1)
  1. CEREZYME [Suspect]
     Indication: GAUCHER^S DISEASE
     Dosage: 13 Vials, q3w
     Route: 042
     Dates: start: 2003, end: 20120809

REACTIONS (1)
  - Aneurysm ruptured [Fatal]
